FAERS Safety Report 7519641-8 (Version None)
Quarter: 2011Q2

REPORT INFORMATION
  Report Type: 
  Country: None (occurrence: None)
  Receive Date: 20110602
  Receipt Date: 20110526
  Transmission Date: 20111010
  Serious: Yes (Other)
  Sender: FDA-Public Use
  Company Number: A0929920A

PATIENT
  Sex: Female

DRUGS (3)
  1. LETROZOLE [Suspect]
     Dosage: 2.5MGD PER DAY
     Route: 048
     Dates: start: 20110201
  2. TYKERB [Suspect]
     Dosage: 1250MGD PER DAY
     Route: 048
     Dates: start: 20110202
  3. CAPECITABINE [Suspect]
     Dosage: 4000MGD PER DAY
     Route: 048
     Dates: start: 20110201

REACTIONS (6)
  - PALMAR-PLANTAR ERYTHRODYSAESTHESIA SYNDROME [None]
  - DRY SKIN [None]
  - EYE IRRITATION [None]
  - BLISTER [None]
  - EYE PAIN [None]
  - ABASIA [None]
